FAERS Safety Report 5367597-9 (Version None)
Quarter: 2007Q2

REPORT INFORMATION
  Report Type: 
  Country: None (occurrence: None)
  Receive Date: 20070622
  Receipt Date: 20061206
  Transmission Date: 20071010
  Serious: No
  Sender: FDA-Public Use
  Company Number: US-ASTRAZENECA-2006UW27177

PATIENT
  Age: 79 Year
  Sex: Male
  Weight: 83.9 kg

DRUGS (12)
  1. PULMICORT TH [Suspect]
     Indication: CHRONIC OBSTRUCTIVE PULMONARY DISEASE
     Route: 055
  2. PULMICORT TH [Suspect]
     Route: 055
  3. SPIRIVA [Suspect]
     Indication: CHRONIC OBSTRUCTIVE PULMONARY DISEASE
  4. ALBUTEROL [Concomitant]
  5. IPRATROPIUM BROMIDE [Concomitant]
  6. LIBRAX [Concomitant]
  7. LIPITOR [Concomitant]
  8. HYDROCHLOROTHIAZIDE [Concomitant]
  9. CITRACEL [Concomitant]
  10. COLACE [Concomitant]
  11. ASPIRIN [Concomitant]
  12. FLOMAX [Concomitant]

REACTIONS (2)
  - DYSPHONIA [None]
  - MUSCLE SPASMS [None]
